FAERS Safety Report 6399654-2 (Version None)
Quarter: 2009Q4

REPORT INFORMATION
  Report Type: 
  Country: None (occurrence: None)
  Receive Date: 20091014
  Receipt Date: 20091005
  Transmission Date: 20100525
  Serious: Yes (Death)
  Sender: FDA-Public Use
  Company Number: JP-ROCHE-581133

PATIENT
  Age: 72 Year
  Sex: Female

DRUGS (1)
  1. ROCEPHIN [Suspect]
     Indication: PYREXIA
     Dosage: ROUTE: INTRAVENOUS (NOT OTHERWISE SPECIFIED)
     Route: 042
     Dates: start: 20080731

REACTIONS (2)
  - ALTERED STATE OF CONSCIOUSNESS [None]
  - CHOREOATHETOSIS [None]
